FAERS Safety Report 11694739 (Version 4)
Quarter: 2015Q4

REPORT INFORMATION
  Report Type: Spontaneous
  Country: TR (occurrence: TR)
  Receive Date: 20151103
  Receipt Date: 20151117
  Transmission Date: 20160304
  Serious: Yes (Hospitalization, Other)
  Sender: FDA-Public Use
  Company Number: TR-PFIZER INC-2015369346

PATIENT
  Age: 27 Year
  Sex: Male

DRUGS (1)
  1. SILDENAFIL CITRATE. [Suspect]
     Active Substance: SILDENAFIL CITRATE
     Indication: SUICIDE ATTEMPT
     Dosage: APPROXIMATELY 1500 MG, UNK
     Route: 048

REACTIONS (5)
  - Palpitations [Recovered/Resolved]
  - Suicide attempt [Recovered/Resolved]
  - Cyanopsia [Recovered/Resolved]
  - Intentional overdose [Recovered/Resolved]
  - Sinus tachycardia [Recovered/Resolved]

NARRATIVE: CASE EVENT DATE: 20150411
